FAERS Safety Report 25420793 (Version 1)
Quarter: 2025Q2

REPORT INFORMATION
  Report Type: Spontaneous
  Country: CA (occurrence: CA)
  Receive Date: 20250611
  Receipt Date: 20250611
  Transmission Date: 20250716
  Serious: Yes (Death, Life-Threatening, Hospitalization, Disabling, Other)
  Sender: GALDERMA
  Company Number: CA-GALDERMA-CA2025009353

PATIENT

DRUGS (463)
  1. DOXYCYCLINE [Suspect]
     Active Substance: DOXYCYCLINE
     Indication: Product used for unknown indication
  2. ACETAMINOPHEN [Concomitant]
     Active Substance: ACETAMINOPHEN
     Indication: Rheumatoid arthritis
  3. ACETAMINOPHEN [Concomitant]
     Active Substance: ACETAMINOPHEN
     Indication: Product used for unknown indication
  4. ACETAMINOPHEN [Concomitant]
     Active Substance: ACETAMINOPHEN
  5. ACETAMINOPHEN [Concomitant]
     Active Substance: ACETAMINOPHEN
  6. ACTEMRA [Concomitant]
     Active Substance: TOCILIZUMAB
     Indication: Rheumatoid arthritis
  7. ACTEMRA [Concomitant]
     Active Substance: TOCILIZUMAB
  8. ACTEMRA [Concomitant]
     Active Substance: TOCILIZUMAB
  9. ACTEMRA [Concomitant]
     Active Substance: TOCILIZUMAB
  10. ACTEMRA [Concomitant]
     Active Substance: TOCILIZUMAB
  11. ACTEMRA [Concomitant]
     Active Substance: TOCILIZUMAB
  12. ACTEMRA [Concomitant]
     Active Substance: TOCILIZUMAB
  13. ACTEMRA [Concomitant]
     Active Substance: TOCILIZUMAB
  14. ACTEMRA [Concomitant]
     Active Substance: TOCILIZUMAB
  15. ACTEMRA [Concomitant]
     Active Substance: TOCILIZUMAB
  16. ACTEMRA [Concomitant]
     Active Substance: TOCILIZUMAB
  17. ALENDRONATE SODIUM [Concomitant]
     Active Substance: ALENDRONATE SODIUM
     Indication: Rheumatoid arthritis
  18. ALENDRONATE SODIUM [Concomitant]
     Active Substance: ALENDRONATE SODIUM
  19. ALENDRONATE SODIUM [Concomitant]
     Active Substance: ALENDRONATE SODIUM
  20. ALENDRONATE SODIUM [Concomitant]
     Active Substance: ALENDRONATE SODIUM
  21. ALENDRONIC ACID [Concomitant]
     Active Substance: ALENDRONIC ACID
     Indication: Rheumatoid arthritis
  22. ALENDRONIC ACID [Concomitant]
     Active Substance: ALENDRONIC ACID
  23. PREDNISONE [Concomitant]
     Active Substance: PREDNISONE
     Indication: Rheumatoid arthritis
  24. PREDNISONE [Concomitant]
     Active Substance: PREDNISONE
  25. ARAVA [Concomitant]
     Active Substance: LEFLUNOMIDE
     Indication: Rheumatoid arthritis
  26. ARAVA [Concomitant]
     Active Substance: LEFLUNOMIDE
  27. ARAVA [Concomitant]
     Active Substance: LEFLUNOMIDE
  28. ARAVA [Concomitant]
     Active Substance: LEFLUNOMIDE
  29. ARAVA [Concomitant]
     Active Substance: LEFLUNOMIDE
  30. ARAVA [Concomitant]
     Active Substance: LEFLUNOMIDE
  31. ADALIMUMAB [Concomitant]
     Active Substance: ADALIMUMAB
     Indication: Rheumatoid arthritis
     Dosage: 40 MILLIGRAM, SUBCUTANEOUS USE, QWK, 1 EVERY 1 WEEKS
  32. ADALIMUMAB [Concomitant]
     Active Substance: ADALIMUMAB
  33. ADALIMUMAB [Concomitant]
     Active Substance: ADALIMUMAB
  34. ADALIMUMAB [Concomitant]
     Active Substance: ADALIMUMAB
  35. ADALIMUMAB [Concomitant]
     Active Substance: ADALIMUMAB
  36. ADALIMUMAB [Concomitant]
     Active Substance: ADALIMUMAB
  37. APREMILAST [Concomitant]
     Active Substance: APREMILAST
     Indication: Product used for unknown indication
  38. APREMILAST [Concomitant]
     Active Substance: APREMILAST
  39. CALCIUM CARBONATE [Concomitant]
     Active Substance: CALCIUM CARBONATE
     Indication: Product used for unknown indication
  40. CALCIUM CARBONATE [Concomitant]
     Active Substance: CALCIUM CARBONATE
  41. CALCIUM CARBONATE [Concomitant]
     Active Substance: CALCIUM CARBONATE
  42. CELECOXIB [Concomitant]
     Active Substance: CELECOXIB
     Indication: Product used for unknown indication
  43. CERTOLIZUMAB PEGOL [Concomitant]
     Active Substance: CERTOLIZUMAB PEGOL
     Indication: Rheumatoid arthritis
  44. CETIRIZINE HYDROCHLORIDE [Concomitant]
     Active Substance: CETIRIZINE HYDROCHLORIDE
     Indication: Rheumatoid arthritis
  45. CETIRIZINE HYDROCHLORIDE [Concomitant]
     Active Substance: CETIRIZINE HYDROCHLORIDE
  46. CETIRIZINE HYDROCHLORIDE [Concomitant]
     Active Substance: CETIRIZINE HYDROCHLORIDE
  47. CETIRIZINE HYDROCHLORIDE\PSEUDOEPHEDRINE HYDROCHLORIDE [Concomitant]
     Active Substance: CETIRIZINE HYDROCHLORIDE\PSEUDOEPHEDRINE HYDROCHLORIDE
     Indication: Rheumatoid arthritis
  48. CETIRIZINE HYDROCHLORIDE\PSEUDOEPHEDRINE HYDROCHLORIDE [Concomitant]
     Active Substance: CETIRIZINE HYDROCHLORIDE\PSEUDOEPHEDRINE HYDROCHLORIDE
     Indication: Rheumatoid arthritis
  49. CETIRIZINE HYDROCHLORIDE\PSEUDOEPHEDRINE HYDROCHLORIDE [Concomitant]
     Active Substance: CETIRIZINE HYDROCHLORIDE\PSEUDOEPHEDRINE HYDROCHLORIDE
  50. CETIRIZINE HYDROCHLORIDE\PSEUDOEPHEDRINE HYDROCHLORIDE [Concomitant]
     Active Substance: CETIRIZINE HYDROCHLORIDE\PSEUDOEPHEDRINE HYDROCHLORIDE
  51. CETIRIZINE HYDROCHLORIDE\PSEUDOEPHEDRINE HYDROCHLORIDE [Concomitant]
     Active Substance: CETIRIZINE HYDROCHLORIDE\PSEUDOEPHEDRINE HYDROCHLORIDE
  52. CETIRIZINE HYDROCHLORIDE\PSEUDOEPHEDRINE HYDROCHLORIDE [Concomitant]
     Active Substance: CETIRIZINE HYDROCHLORIDE\PSEUDOEPHEDRINE HYDROCHLORIDE
  53. CETIRIZINE HYDROCHLORIDE\PSEUDOEPHEDRINE HYDROCHLORIDE [Concomitant]
     Active Substance: CETIRIZINE HYDROCHLORIDE\PSEUDOEPHEDRINE HYDROCHLORIDE
  54. CETIRIZINE HYDROCHLORIDE\PSEUDOEPHEDRINE HYDROCHLORIDE [Concomitant]
     Active Substance: CETIRIZINE HYDROCHLORIDE\PSEUDOEPHEDRINE HYDROCHLORIDE
  55. CETIRIZINE HYDROCHLORIDE\PSEUDOEPHEDRINE HYDROCHLORIDE [Concomitant]
     Active Substance: CETIRIZINE HYDROCHLORIDE\PSEUDOEPHEDRINE HYDROCHLORIDE
  56. CETIRIZINE HYDROCHLORIDE\PSEUDOEPHEDRINE HYDROCHLORIDE [Concomitant]
     Active Substance: CETIRIZINE HYDROCHLORIDE\PSEUDOEPHEDRINE HYDROCHLORIDE
  57. CETIRIZINE HYDROCHLORIDE\PSEUDOEPHEDRINE HYDROCHLORIDE [Concomitant]
     Active Substance: CETIRIZINE HYDROCHLORIDE\PSEUDOEPHEDRINE HYDROCHLORIDE
  58. CETIRIZINE HYDROCHLORIDE\PSEUDOEPHEDRINE HYDROCHLORIDE [Concomitant]
     Active Substance: CETIRIZINE HYDROCHLORIDE\PSEUDOEPHEDRINE HYDROCHLORIDE
  59. CETIRIZINE HYDROCHLORIDE\PSEUDOEPHEDRINE HYDROCHLORIDE [Concomitant]
     Active Substance: CETIRIZINE HYDROCHLORIDE\PSEUDOEPHEDRINE HYDROCHLORIDE
  60. CETIRIZINE HYDROCHLORIDE\PSEUDOEPHEDRINE HYDROCHLORIDE [Concomitant]
     Active Substance: CETIRIZINE HYDROCHLORIDE\PSEUDOEPHEDRINE HYDROCHLORIDE
  61. CHLORHEXIDINE [Concomitant]
     Active Substance: CHLORHEXIDINE
     Indication: Product used for unknown indication
  62. CHLORHEXIDINE [Concomitant]
     Active Substance: CHLORHEXIDINE
  63. CHLORHEXIDINE [Concomitant]
     Active Substance: CHLORHEXIDINE
  64. CHLORHEXIDINE [Concomitant]
     Active Substance: CHLORHEXIDINE
  65. CHLORHEXIDINE [Concomitant]
     Active Substance: CHLORHEXIDINE
  66. CIMZIA [Concomitant]
     Active Substance: CERTOLIZUMAB PEGOL
     Indication: Rheumatoid arthritis
  67. CIMZIA [Concomitant]
     Active Substance: CERTOLIZUMAB PEGOL
     Indication: Psoriasis
  68. CIMZIA [Concomitant]
     Active Substance: CERTOLIZUMAB PEGOL
  69. CIMZIA [Concomitant]
     Active Substance: CERTOLIZUMAB PEGOL
  70. CIMZIA [Concomitant]
     Active Substance: CERTOLIZUMAB PEGOL
  71. CIMZIA [Concomitant]
     Active Substance: CERTOLIZUMAB PEGOL
  72. CIMZIA [Concomitant]
     Active Substance: CERTOLIZUMAB PEGOL
  73. CAFFEINE [Concomitant]
     Active Substance: CAFFEINE
     Indication: Product used for unknown indication
  74. CAFFEINE CITRATE [Concomitant]
     Active Substance: CAFFEINE CITRATE
     Indication: Product used for unknown indication
  75. CALCIUM [Concomitant]
     Active Substance: CALCIUM
     Indication: Product used for unknown indication
  76. CALCIUM GLUBIONATE [Concomitant]
     Active Substance: CALCIUM GLUBIONATE
     Indication: Product used for unknown indication
  77. CALCIUM GLUBIONATE [Concomitant]
     Active Substance: CALCIUM GLUBIONATE
  78. DIETARY SUPPLEMENT\MINERALS\VITAMINS [Concomitant]
     Active Substance: DIETARY SUPPLEMENT\MINERALS\VITAMINS
     Indication: Product used for unknown indication
  79. CELEBREX [Concomitant]
     Active Substance: CELECOXIB
     Indication: Product used for unknown indication
  80. HYDROCORTISONE ACETATE [Concomitant]
     Active Substance: HYDROCORTISONE ACETATE
     Indication: Rheumatoid arthritis
  81. HYDROCORTISONE ACETATE [Concomitant]
     Active Substance: HYDROCORTISONE ACETATE
  82. HYDROCORTISONE ACETATE [Concomitant]
     Active Substance: HYDROCORTISONE ACETATE
  83. HYDROCORTISONE ACETATE [Concomitant]
     Active Substance: HYDROCORTISONE ACETATE
  84. CORTISONE ACETATE [Concomitant]
     Active Substance: CORTISONE ACETATE
     Indication: Rheumatoid arthritis
  85. CORTISONE ACETATE [Concomitant]
     Active Substance: CORTISONE ACETATE
  86. CORTISONE ACETATE [Concomitant]
     Active Substance: CORTISONE ACETATE
  87. CORTISONE ACETATE [Concomitant]
     Active Substance: CORTISONE ACETATE
  88. CORTISONE ACETATE [Concomitant]
     Active Substance: CORTISONE ACETATE
  89. CORTISONE ACETATE [Concomitant]
     Active Substance: CORTISONE ACETATE
  90. CORTISONE ACETATE [Concomitant]
     Active Substance: CORTISONE ACETATE
  91. CORTISONE ACETATE [Concomitant]
     Active Substance: CORTISONE ACETATE
  92. CORTISONE ACETATE [Concomitant]
     Active Substance: CORTISONE ACETATE
  93. CORTISONE ACETATE [Concomitant]
     Active Substance: CORTISONE ACETATE
  94. CHOLECALCIFEROL [Concomitant]
     Active Substance: CHOLECALCIFEROL
     Indication: Product used for unknown indication
  95. COSENTYX [Concomitant]
     Active Substance: SECUKINUMAB
     Indication: Rheumatoid arthritis
  96. COSENTYX [Concomitant]
     Active Substance: SECUKINUMAB
     Indication: Psoriatic arthropathy
  97. COSENTYX [Concomitant]
     Active Substance: SECUKINUMAB
     Indication: Rheumatoid arthritis
  98. COSENTYX [Concomitant]
     Active Substance: SECUKINUMAB
     Indication: Psoriatic arthropathy
  99. DESOXIMETASONE [Concomitant]
     Active Substance: DESOXIMETASONE
     Indication: Rheumatoid arthritis
  100. DESOXIMETASONE [Concomitant]
     Active Substance: DESOXIMETASONE
  101. DESOXIMETASONE [Concomitant]
     Active Substance: DESOXIMETASONE
  102. DESOXIMETASONE [Concomitant]
     Active Substance: DESOXIMETASONE
     Dosage: 25 MILLIGRAM, ORAL USE, QWK, 1 EVERY 1 WEEK
  103. DESOXIMETASONE [Concomitant]
     Active Substance: DESOXIMETASONE
  104. DESOXIMETASONE [Concomitant]
     Active Substance: DESOXIMETASONE
  105. DESOXIMETASONE [Concomitant]
     Active Substance: DESOXIMETASONE
  106. DESOXIMETASONE [Concomitant]
     Active Substance: DESOXIMETASONE
  107. DESOXIMETASONE [Concomitant]
     Active Substance: DESOXIMETASONE
  108. DESOXIMETASONE [Concomitant]
     Active Substance: DESOXIMETASONE
  109. DESOXIMETASONE [Concomitant]
     Active Substance: DESOXIMETASONE
     Indication: Rheumatoid arthritis
  110. DESOXIMETASONE [Concomitant]
     Active Substance: DESOXIMETASONE
  111. DESOXIMETASONE [Concomitant]
     Active Substance: DESOXIMETASONE
  112. DESOXIMETASONE [Concomitant]
     Active Substance: DESOXIMETASONE
  113. DESOXIMETASONE [Concomitant]
     Active Substance: DESOXIMETASONE
  114. DESOXIMETASONE [Concomitant]
     Active Substance: DESOXIMETASONE
     Indication: Rheumatoid arthritis
  115. DESOXIMETASONE [Concomitant]
     Active Substance: DESOXIMETASONE
  116. DESOXIMETASONE [Concomitant]
     Active Substance: DESOXIMETASONE
  117. DESOXIMETASONE [Concomitant]
     Active Substance: DESOXIMETASONE
  118. DESOXIMETASONE [Concomitant]
     Active Substance: DESOXIMETASONE
  119. DICLOFENAC DIETHYLAMINE [Concomitant]
     Active Substance: DICLOFENAC DIETHYLAMINE
     Indication: Product used for unknown indication
  120. DICLOFENAC DIETHYLAMINE [Concomitant]
     Active Substance: DICLOFENAC DIETHYLAMINE
  121. DICLOFENAC SODIUM [Concomitant]
     Active Substance: DICLOFENAC SODIUM
     Indication: Product used for unknown indication
  122. DICLOFENAC SODIUM [Concomitant]
     Active Substance: DICLOFENAC SODIUM
  123. DICLOFENAC SODIUM [Concomitant]
     Active Substance: DICLOFENAC SODIUM
  124. DICLOFENAC SODIUM [Concomitant]
     Active Substance: DICLOFENAC SODIUM
  125. DICLOFENAC [Concomitant]
     Active Substance: DICLOFENAC
     Indication: Product used for unknown indication
  126. DICLOFENAC [Concomitant]
     Active Substance: DICLOFENAC
  127. DICLOFENAC [Concomitant]
     Active Substance: DICLOFENAC
  128. DICLOFENAC [Concomitant]
     Active Substance: DICLOFENAC
  129. DICLOFENAC [Concomitant]
     Active Substance: DICLOFENAC
  130. DICLOFENAC [Concomitant]
     Active Substance: DICLOFENAC
  131. DICLOFENAC POTASSIUM [Concomitant]
     Active Substance: DICLOFENAC POTASSIUM
     Indication: Product used for unknown indication
  132. ENBREL [Concomitant]
     Active Substance: ETANERCEPT
     Indication: Rheumatoid arthritis
  133. ENBREL [Concomitant]
     Active Substance: ETANERCEPT
     Indication: Psoriatic arthropathy
  134. ENBREL [Concomitant]
     Active Substance: ETANERCEPT
  135. ENBREL [Concomitant]
     Active Substance: ETANERCEPT
  136. ENBREL [Concomitant]
     Active Substance: ETANERCEPT
     Dosage: 50 MILLIGRAM, SUBCUTANEOUS USE, QWK, 1 EVERY 1 WEEKS
  137. ENBREL [Concomitant]
     Active Substance: ETANERCEPT
  138. ENBREL [Concomitant]
     Active Substance: ETANERCEPT
  139. ENBREL [Concomitant]
     Active Substance: ETANERCEPT
  140. ENBREL [Concomitant]
     Active Substance: ETANERCEPT
  141. ENBREL [Concomitant]
     Active Substance: ETANERCEPT
     Dosage: 50 MILLIGRAM, SUBCUTANEOUS USE, QWK, 1 EVERY 1 WEEKS
  142. ENBREL [Concomitant]
     Active Substance: ETANERCEPT
  143. ERELZI [Concomitant]
     Active Substance: ETANERCEPT-SZZS
     Indication: Rheumatoid arthritis
  144. ERELZI [Concomitant]
     Active Substance: ETANERCEPT-SZZS
     Dosage: 50 MILLIGRAM, SUBCUTANEOUS USE, QWK, 1 EVERY 1 WEEKS
  145. ERELZI [Concomitant]
     Active Substance: ETANERCEPT-SZZS
     Dosage: 50 MILLIGRAM, UNKNOWN, QWK, 1 EVERY 1 WEEKS
  146. ERELZI [Concomitant]
     Active Substance: ETANERCEPT-SZZS
     Dosage: 50 MILLIGRAM, SUBCUTANEOUS USE, QWK, 1 EVERY 1 WEEKS
  147. ERELZI [Concomitant]
     Active Substance: ETANERCEPT-SZZS
     Dosage: 25 MILLIGRAM, UNKNOWN, QWK, 1 EVERY 1 WEEKS
  148. ERELZI [Concomitant]
     Active Substance: ETANERCEPT-SZZS
     Dosage: 25 MILLIGRAM, UNKNOWN, QWK, 1 EVERY 1 WEEKS
  149. ERELZI [Concomitant]
     Active Substance: ETANERCEPT-SZZS
  150. ERELZI [Concomitant]
     Active Substance: ETANERCEPT-SZZS
  151. ERELZI [Concomitant]
     Active Substance: ETANERCEPT-SZZS
     Dosage: UNK UNK, SUBCUTANEOUS USE, QWK, 1 EVERY 1 WEEKS
  152. ERELZI [Concomitant]
     Active Substance: ETANERCEPT-SZZS
  153. ERELZI [Concomitant]
     Active Substance: ETANERCEPT-SZZS
  154. FLUMETHASONE PIVALATE [Concomitant]
     Active Substance: FLUMETHASONE PIVALATE
     Indication: Rheumatoid arthritis
  155. FLUMETHASONE PIVALATE [Concomitant]
     Active Substance: FLUMETHASONE PIVALATE
  156. FOLIC ACID [Concomitant]
     Active Substance: FOLIC ACID
     Indication: Rheumatoid arthritis
  157. FOLIC ACID [Concomitant]
     Active Substance: FOLIC ACID
  158. FOLIC ACID [Concomitant]
     Active Substance: FOLIC ACID
  159. FOLIC ACID [Concomitant]
     Active Substance: FOLIC ACID
  160. FOLIC ACID [Concomitant]
     Active Substance: FOLIC ACID
  161. FOLIC ACID [Concomitant]
     Active Substance: FOLIC ACID
  162. FOLIC ACID [Concomitant]
     Active Substance: FOLIC ACID
  163. FOLIC ACID [Concomitant]
     Active Substance: FOLIC ACID
  164. FOLIC ACID [Concomitant]
     Active Substance: FOLIC ACID
  165. FOLIC ACID [Concomitant]
     Active Substance: FOLIC ACID
  166. FOLIC ACID [Concomitant]
     Active Substance: FOLIC ACID
  167. FOLIC ACID [Concomitant]
     Active Substance: FOLIC ACID
  168. FOLIC ACID [Concomitant]
     Active Substance: FOLIC ACID
  169. FOLIC ACID [Concomitant]
     Active Substance: FOLIC ACID
  170. FOLIC ACID [Concomitant]
     Active Substance: FOLIC ACID
  171. FOLIC ACID [Concomitant]
     Active Substance: FOLIC ACID
  172. FOLIC ACID [Concomitant]
     Active Substance: FOLIC ACID
  173. FOLIC ACID [Concomitant]
     Active Substance: FOLIC ACID
  174. FOLIC ACID [Concomitant]
     Active Substance: FOLIC ACID
  175. FOLIC ACID [Concomitant]
     Active Substance: FOLIC ACID
  176. FOSAMAX [Concomitant]
     Active Substance: ALENDRONATE SODIUM
     Indication: Rheumatoid arthritis
  177. FOSAMAX [Concomitant]
     Active Substance: ALENDRONATE SODIUM
  178. FOSAMAX [Concomitant]
     Active Substance: ALENDRONATE SODIUM
  179. FOSAMAX [Concomitant]
     Active Substance: ALENDRONATE SODIUM
  180. GOLIMUMAB [Concomitant]
     Active Substance: GOLIMUMAB
     Indication: Rheumatoid arthritis
  181. GOLIMUMAB [Concomitant]
     Active Substance: GOLIMUMAB
  182. HUMIRA [Concomitant]
     Active Substance: ADALIMUMAB
     Indication: Rheumatoid arthritis
  183. HUMIRA [Concomitant]
     Active Substance: ADALIMUMAB
     Indication: Psoriatic arthropathy
  184. HUMIRA [Concomitant]
     Active Substance: ADALIMUMAB
  185. HUMIRA [Concomitant]
     Active Substance: ADALIMUMAB
  186. HUMIRA [Concomitant]
     Active Substance: ADALIMUMAB
  187. HUMIRA [Concomitant]
     Active Substance: ADALIMUMAB
  188. HUMIRA [Concomitant]
     Active Substance: ADALIMUMAB
  189. HUMIRA [Concomitant]
     Active Substance: ADALIMUMAB
  190. HUMIRA [Concomitant]
     Active Substance: ADALIMUMAB
  191. HUMIRA [Concomitant]
     Active Substance: ADALIMUMAB
     Dosage: 400 MILLIGRAM, SUBCUTANEOUS USE, QWK, 1 EVERY 1 WEEKS
  192. HUMIRA [Concomitant]
     Active Substance: ADALIMUMAB
  193. HUMIRA [Concomitant]
     Active Substance: ADALIMUMAB
  194. HYDROXYCHLOROQUINE [Concomitant]
     Active Substance: HYDROXYCHLOROQUINE
     Indication: Rheumatoid arthritis
  195. HYDROXYCHLOROQUINE [Concomitant]
     Active Substance: HYDROXYCHLOROQUINE
  196. HYDROXYCHLOROQUINE [Concomitant]
     Active Substance: HYDROXYCHLOROQUINE
  197. HYDROXYCHLOROQUINE [Concomitant]
     Active Substance: HYDROXYCHLOROQUINE
  198. HYDROXYCHLOROQUINE [Concomitant]
     Active Substance: HYDROXYCHLOROQUINE
  199. HYDROXYCHLOROQUINE [Concomitant]
     Active Substance: HYDROXYCHLOROQUINE
  200. HYDROXYCHLOROQUINE [Concomitant]
     Active Substance: HYDROXYCHLOROQUINE
  201. HYDROXYCHLOROQUINE [Concomitant]
     Active Substance: HYDROXYCHLOROQUINE
  202. HYDROXYCHLOROQUINE [Concomitant]
     Active Substance: HYDROXYCHLOROQUINE
  203. HYDROXYCHLOROQUINE [Concomitant]
     Active Substance: HYDROXYCHLOROQUINE
  204. HYDROXYCHLOROQUINE [Concomitant]
     Active Substance: HYDROXYCHLOROQUINE
  205. HYDROXYCHLOROQUINE [Concomitant]
     Active Substance: HYDROXYCHLOROQUINE
  206. HYDROXYCHLOROQUINE [Concomitant]
     Active Substance: HYDROXYCHLOROQUINE
  207. HYDROXYCHLOROQUINE [Concomitant]
     Active Substance: HYDROXYCHLOROQUINE
  208. HYDROXYCHLOROQUINE [Concomitant]
     Active Substance: HYDROXYCHLOROQUINE
  209. HYDROXYCHLOROQUINE [Concomitant]
     Active Substance: HYDROXYCHLOROQUINE
  210. HYDROXYCHLOROQUINE [Concomitant]
     Active Substance: HYDROXYCHLOROQUINE
  211. HYDROXYCHLOROQUINE SULFATE [Concomitant]
     Active Substance: HYDROXYCHLOROQUINE SULFATE
     Indication: Rheumatoid arthritis
  212. HYDROXYCHLOROQUINE SULFATE [Concomitant]
     Active Substance: HYDROXYCHLOROQUINE SULFATE
  213. HYDROXYCHLOROQUINE SULFATE [Concomitant]
     Active Substance: HYDROXYCHLOROQUINE SULFATE
  214. HYDROXYCHLOROQUINE SULFATE [Concomitant]
     Active Substance: HYDROXYCHLOROQUINE SULFATE
  215. HYDROXYCHLOROQUINE SULFATE [Concomitant]
     Active Substance: HYDROXYCHLOROQUINE SULFATE
  216. HYDROXYCHLOROQUINE SULFATE [Concomitant]
     Active Substance: HYDROXYCHLOROQUINE SULFATE
  217. HYDROXYCHLOROQUINE SULFATE [Concomitant]
     Active Substance: HYDROXYCHLOROQUINE SULFATE
  218. HYDROXYCHLOROQUINE SULFATE [Concomitant]
     Active Substance: HYDROXYCHLOROQUINE SULFATE
  219. HYDROXYCHLOROQUINE SULFATE [Concomitant]
     Active Substance: HYDROXYCHLOROQUINE SULFATE
  220. HYDROXYCHLOROQUINE SULFATE [Concomitant]
     Active Substance: HYDROXYCHLOROQUINE SULFATE
  221. HYDROXYCHLOROQUINE SULFATE [Concomitant]
     Active Substance: HYDROXYCHLOROQUINE SULFATE
  222. HYDROXYCHLOROQUINE SULFATE [Concomitant]
     Active Substance: HYDROXYCHLOROQUINE SULFATE
  223. HYDROXYCHLOROQUINE SULFATE [Concomitant]
     Active Substance: HYDROXYCHLOROQUINE SULFATE
  224. HYDROXYCHLOROQUINE SULFATE [Concomitant]
     Active Substance: HYDROXYCHLOROQUINE SULFATE
  225. HYDROXYCHLOROQUINE SULFATE [Concomitant]
     Active Substance: HYDROXYCHLOROQUINE SULFATE
  226. HYDROCORTISONE [Concomitant]
     Active Substance: HYDROCORTISONE
     Indication: Rheumatoid arthritis
  227. HYDROCORTISONE [Concomitant]
     Active Substance: HYDROCORTISONE
  228. HYDROCORTISONE [Concomitant]
     Active Substance: HYDROCORTISONE
  229. HYDROCORTISONE [Concomitant]
     Active Substance: HYDROCORTISONE
  230. HYDROCORTISONE [Concomitant]
     Active Substance: HYDROCORTISONE
  231. HYDROCORTISONE [Concomitant]
     Active Substance: HYDROCORTISONE
  232. HYRIMOZ [Concomitant]
     Active Substance: ADALIMUMAB-ADAZ
     Indication: Rheumatoid arthritis
  233. HYRIMOZ [Concomitant]
     Active Substance: ADALIMUMAB-ADAZ
  234. HYRIMOZ [Concomitant]
     Active Substance: ADALIMUMAB-ADAZ
  235. HYRIMOZ [Concomitant]
     Active Substance: ADALIMUMAB-ADAZ
  236. INFLIXIMAB [Concomitant]
     Active Substance: INFLIXIMAB
     Indication: Rheumatoid arthritis
  237. INFLIXIMAB [Concomitant]
     Active Substance: INFLIXIMAB
     Indication: Product used for unknown indication
  238. INFLIXIMAB [Concomitant]
     Active Substance: INFLIXIMAB
  239. INFLIXIMAB [Concomitant]
     Active Substance: INFLIXIMAB
  240. INFLIXIMAB [Concomitant]
     Active Substance: INFLIXIMAB
  241. INFLIXIMAB [Concomitant]
     Active Substance: INFLIXIMAB
  242. INFLIXIMAB [Concomitant]
     Active Substance: INFLIXIMAB
  243. INFLIXIMAB [Concomitant]
     Active Substance: INFLIXIMAB
  244. IBUPROFEN [Concomitant]
     Active Substance: IBUPROFEN
     Indication: Product used for unknown indication
  245. KEVZARA [Concomitant]
     Active Substance: SARILUMAB
     Indication: Rheumatoid arthritis
  246. METHOTREXATE [Concomitant]
     Active Substance: METHOTREXATE
     Indication: Rheumatoid arthritis
  247. METHOTREXATE [Concomitant]
     Active Substance: METHOTREXATE
  248. METHOTREXATE [Concomitant]
     Active Substance: METHOTREXATE
  249. METHOTREXATE [Concomitant]
     Active Substance: METHOTREXATE
  250. METHOTREXATE [Concomitant]
     Active Substance: METHOTREXATE
  251. METHOTREXATE [Concomitant]
     Active Substance: METHOTREXATE
  252. METHOTREXATE [Concomitant]
     Active Substance: METHOTREXATE
     Dosage: 25 MILLIGRAM, ORAL USE, QD, 1 EVERY 1 WEEK
  253. METHOTREXATE [Concomitant]
     Active Substance: METHOTREXATE
  254. METHOTREXATE [Concomitant]
     Active Substance: METHOTREXATE
  255. METHOTREXATE [Concomitant]
     Active Substance: METHOTREXATE
  256. METHOTREXATE [Concomitant]
     Active Substance: METHOTREXATE
  257. METHOTREXATE [Concomitant]
     Active Substance: METHOTREXATE
  258. METHOTREXATE [Concomitant]
     Active Substance: METHOTREXATE
  259. METHOTREXATE [Concomitant]
     Active Substance: METHOTREXATE
  260. METHOTREXATE [Concomitant]
     Active Substance: METHOTREXATE
  261. METHOTREXATE [Concomitant]
     Active Substance: METHOTREXATE
  262. METHOTREXATE [Concomitant]
     Active Substance: METHOTREXATE
  263. METHOTREXATE [Concomitant]
     Active Substance: METHOTREXATE
  264. METHOTREXATE [Concomitant]
     Active Substance: METHOTREXATE
  265. METHOTREXATE [Concomitant]
     Active Substance: METHOTREXATE
  266. METHOTREXATE [Concomitant]
     Active Substance: METHOTREXATE
  267. METHOTREXATE [Concomitant]
     Active Substance: METHOTREXATE
  268. NAPROXEN SODIUM [Concomitant]
     Active Substance: NAPROXEN SODIUM
     Indication: Rheumatoid arthritis
  269. NAPROXEN SODIUM [Concomitant]
     Active Substance: NAPROXEN SODIUM
  270. NAPROXEN SODIUM [Concomitant]
     Active Substance: NAPROXEN SODIUM
  271. NAPROXEN SODIUM [Concomitant]
     Active Substance: NAPROXEN SODIUM
  272. NAPROXEN SODIUM [Concomitant]
     Active Substance: NAPROXEN SODIUM
  273. NAPROXEN SODIUM [Concomitant]
     Active Substance: NAPROXEN SODIUM
  274. NAPROXEN SODIUM [Concomitant]
     Active Substance: NAPROXEN SODIUM
  275. LEFLUNOMIDE [Concomitant]
     Active Substance: LEFLUNOMIDE
     Indication: Rheumatoid arthritis
  276. LEFLUNOMIDE [Concomitant]
     Active Substance: LEFLUNOMIDE
  277. LEFLUNOMIDE [Concomitant]
     Active Substance: LEFLUNOMIDE
  278. LEFLUNOMIDE [Concomitant]
     Active Substance: LEFLUNOMIDE
  279. LEVOCABASTINE HYDROCHLORIDE [Concomitant]
     Active Substance: LEVOCABASTINE HYDROCHLORIDE
     Indication: Product used for unknown indication
  280. LEVOTHYROXINE SODIUM [Concomitant]
     Active Substance: LEVOTHYROXINE SODIUM
     Indication: Product used for unknown indication
  281. LISINOPRIL [Concomitant]
     Active Substance: LISINOPRIL
     Indication: Product used for unknown indication
  282. LISINOPRIL [Concomitant]
     Active Substance: LISINOPRIL
  283. MAGNESIUM CARBONATE [Concomitant]
     Active Substance: MAGNESIUM CARBONATE
     Indication: Product used for unknown indication
  284. MELOXICAM [Concomitant]
     Active Substance: MELOXICAM
     Indication: Product used for unknown indication
  285. MYCOPHENOLATE MOFETIL [Concomitant]
     Active Substance: MYCOPHENOLATE MOFETIL
     Indication: Product used for unknown indication
  286. ORENCIA [Concomitant]
     Active Substance: ABATACEPT
     Indication: Rheumatoid arthritis
  287. ORENCIA [Concomitant]
     Active Substance: ABATACEPT
  288. ORENCIA [Concomitant]
     Active Substance: ABATACEPT
  289. ORENCIA [Concomitant]
     Active Substance: ABATACEPT
  290. ORENCIA [Concomitant]
     Active Substance: ABATACEPT
  291. ORENCIA [Concomitant]
     Active Substance: ABATACEPT
  292. ORENCIA [Concomitant]
     Active Substance: ABATACEPT
  293. ORENCIA [Concomitant]
     Active Substance: ABATACEPT
  294. ORENCIA [Concomitant]
     Active Substance: ABATACEPT
  295. ORENCIA [Concomitant]
     Active Substance: ABATACEPT
  296. ORENCIA [Concomitant]
     Active Substance: ABATACEPT
  297. ORENCIA [Concomitant]
     Active Substance: ABATACEPT
  298. ORENCIA [Concomitant]
     Active Substance: ABATACEPT
  299. ORENCIA [Concomitant]
     Active Substance: ABATACEPT
  300. ORENCIA [Concomitant]
     Active Substance: ABATACEPT
     Indication: Rheumatoid arthritis
  301. ORENCIA [Concomitant]
     Active Substance: ABATACEPT
  302. OTEZLA [Concomitant]
     Active Substance: APREMILAST
     Indication: Product used for unknown indication
  303. OTEZLA [Concomitant]
     Active Substance: APREMILAST
  304. OTEZLA [Concomitant]
     Active Substance: APREMILAST
  305. OXYCODONE [Concomitant]
     Active Substance: OXYCODONE
     Indication: Product used for unknown indication
  306. OXYCODONE TEREPHTHALATE [Concomitant]
     Active Substance: OXYCODONE TEREPHTHALATE
     Indication: Product used for unknown indication
  307. PERIOGARD [Concomitant]
     Active Substance: CHLORHEXIDINE GLUCONATE
     Indication: Product used for unknown indication
  308. PERIOGARD [Concomitant]
     Active Substance: CHLORHEXIDINE GLUCONATE
  309. PERIOGARD [Concomitant]
     Active Substance: CHLORHEXIDINE GLUCONATE
  310. PHTHALYLSULFATHIAZOLE [Concomitant]
     Active Substance: PHTHALYLSULFATHIAZOLE
     Indication: Rheumatoid arthritis
  311. PHTHALYLSULFATHIAZOLE [Concomitant]
     Active Substance: PHTHALYLSULFATHIAZOLE
  312. PHTHALYLSULFATHIAZOLE [Concomitant]
     Active Substance: PHTHALYLSULFATHIAZOLE
  313. PHTHALYLSULFATHIAZOLE [Concomitant]
     Active Substance: PHTHALYLSULFATHIAZOLE
  314. PHTHALYLSULFATHIAZOLE [Concomitant]
     Active Substance: PHTHALYLSULFATHIAZOLE
  315. PHTHALYLSULFATHIAZOLE [Concomitant]
     Active Substance: PHTHALYLSULFATHIAZOLE
  316. PHTHALYLSULFATHIAZOLE [Concomitant]
     Active Substance: PHTHALYLSULFATHIAZOLE
  317. PHTHALYLSULFATHIAZOLE [Concomitant]
     Active Substance: PHTHALYLSULFATHIAZOLE
  318. PHTHALYLSULFATHIAZOLE [Concomitant]
     Active Substance: PHTHALYLSULFATHIAZOLE
  319. PHTHALYLSULFATHIAZOLE [Concomitant]
     Active Substance: PHTHALYLSULFATHIAZOLE
  320. PHTHALYLSULFATHIAZOLE [Concomitant]
     Active Substance: PHTHALYLSULFATHIAZOLE
  321. PLAQUENIL [Concomitant]
     Active Substance: HYDROXYCHLOROQUINE SULFATE
     Indication: Rheumatoid arthritis
  322. PIROXICAM [Concomitant]
     Active Substance: PIROXICAM
     Indication: Product used for unknown indication
  323. PREDNISONE [Concomitant]
     Active Substance: PREDNISONE
     Indication: Rheumatoid arthritis
  324. PREDNISONE [Concomitant]
     Active Substance: PREDNISONE
     Indication: Condition aggravated
  325. PREDNISONE [Concomitant]
     Active Substance: PREDNISONE
     Indication: Psoriatic arthropathy
  326. PREDNISONE [Concomitant]
     Active Substance: PREDNISONE
  327. PREDNISONE [Concomitant]
     Active Substance: PREDNISONE
  328. PREDNISONE [Concomitant]
     Active Substance: PREDNISONE
  329. PREDNISONE [Concomitant]
     Active Substance: PREDNISONE
  330. PREDNISONE [Concomitant]
     Active Substance: PREDNISONE
  331. PREDNISONE [Concomitant]
     Active Substance: PREDNISONE
  332. PREDNISONE [Concomitant]
     Active Substance: PREDNISONE
  333. PREDNISONE [Concomitant]
     Active Substance: PREDNISONE
  334. PREDNISONE [Concomitant]
     Active Substance: PREDNISONE
  335. PREDNISONE [Concomitant]
     Active Substance: PREDNISONE
  336. PREDNISONE [Concomitant]
     Active Substance: PREDNISONE
  337. PREDNISONE [Concomitant]
     Active Substance: PREDNISONE
  338. PREDNISONE [Concomitant]
     Active Substance: PREDNISONE
  339. PREDNISONE [Concomitant]
     Active Substance: PREDNISONE
  340. PREDNISONE [Concomitant]
     Active Substance: PREDNISONE
  341. PREDNISOLONE [Concomitant]
     Active Substance: PREDNISOLONE
     Indication: Product used for unknown indication
  342. PSEUDOEPHEDRINE HYDROCHLORIDE [Concomitant]
     Active Substance: PSEUDOEPHEDRINE HYDROCHLORIDE
     Indication: Rheumatoid arthritis
  343. PSEUDOEPHEDRINE HYDROCHLORIDE [Concomitant]
     Active Substance: PSEUDOEPHEDRINE HYDROCHLORIDE
  344. PSEUDOEPHEDRINE HYDROCHLORIDE [Concomitant]
     Active Substance: PSEUDOEPHEDRINE HYDROCHLORIDE
  345. PSEUDOEPHEDRINE HYDROCHLORIDE [Concomitant]
     Active Substance: PSEUDOEPHEDRINE HYDROCHLORIDE
  346. PSEUDOEPHEDRINE HYDROCHLORIDE [Concomitant]
     Active Substance: PSEUDOEPHEDRINE HYDROCHLORIDE
  347. PSEUDOEPHEDRINE HYDROCHLORIDE [Concomitant]
     Active Substance: PSEUDOEPHEDRINE HYDROCHLORIDE
  348. Reactine [Concomitant]
     Indication: Rheumatoid arthritis
  349. Reactine [Concomitant]
  350. Reactine [Concomitant]
  351. Reactine [Concomitant]
  352. Reactine [Concomitant]
  353. Reactine [Concomitant]
  354. Reactine [Concomitant]
  355. Reactine [Concomitant]
  356. QUETIAPINE FUMARATE [Concomitant]
     Active Substance: QUETIAPINE FUMARATE
     Indication: Product used for unknown indication
  357. RAMIPRIL [Concomitant]
     Active Substance: RAMIPRIL
     Indication: Product used for unknown indication
  358. REMICADE [Concomitant]
     Active Substance: INFLIXIMAB
     Indication: Rheumatoid arthritis
  359. REMICADE [Concomitant]
     Active Substance: INFLIXIMAB
  360. REMICADE [Concomitant]
     Active Substance: INFLIXIMAB
  361. REMICADE [Concomitant]
     Active Substance: INFLIXIMAB
  362. REMICADE [Concomitant]
     Active Substance: INFLIXIMAB
  363. REMICADE [Concomitant]
     Active Substance: INFLIXIMAB
  364. REMICADE [Concomitant]
     Active Substance: INFLIXIMAB
  365. RITUXIMAB [Concomitant]
     Active Substance: RITUXIMAB
     Indication: Rheumatoid arthritis
  366. RITUXIMAB [Concomitant]
     Active Substance: RITUXIMAB
  367. RITUXIMAB [Concomitant]
     Active Substance: RITUXIMAB
  368. RITUXIMAB [Concomitant]
     Active Substance: RITUXIMAB
  369. RITUXIMAB [Concomitant]
     Active Substance: RITUXIMAB
  370. RISEDRONATE SODIUM [Concomitant]
     Active Substance: RISEDRONATE SODIUM
     Indication: Product used for unknown indication
  371. APREMILAST [Concomitant]
     Active Substance: APREMILAST
     Indication: Product used for unknown indication
  372. APREMILAST [Concomitant]
     Active Substance: APREMILAST
  373. HYDROCORTISONE [Concomitant]
     Active Substance: HYDROCORTISONE
     Indication: Rheumatoid arthritis
  374. LEFLUNOMIDE [Concomitant]
     Active Substance: LEFLUNOMIDE
     Indication: Rheumatoid arthritis
  375. LEFLUNOMIDE [Concomitant]
     Active Substance: LEFLUNOMIDE
  376. LEFLUNOMIDE [Concomitant]
     Active Substance: LEFLUNOMIDE
  377. LEFLUNOMIDE [Concomitant]
     Active Substance: LEFLUNOMIDE
  378. MYCOPHENOLATE MOFETIL [Concomitant]
     Active Substance: MYCOPHENOLATE MOFETIL
     Indication: Product used for unknown indication
  379. SULFASALAZINE [Concomitant]
     Active Substance: SULFASALAZINE
     Indication: Product used for unknown indication
  380. SIMPONI [Concomitant]
     Active Substance: GOLIMUMAB
     Indication: Rheumatoid arthritis
  381. SIMPONI [Concomitant]
     Active Substance: GOLIMUMAB
     Indication: Psoriatic arthropathy
  382. SIMPONI [Concomitant]
     Active Substance: GOLIMUMAB
  383. SIMPONI [Concomitant]
     Active Substance: GOLIMUMAB
  384. SIMPONI [Concomitant]
     Active Substance: GOLIMUMAB
  385. SIMPONI [Concomitant]
     Active Substance: GOLIMUMAB
  386. SIMPONI [Concomitant]
     Active Substance: GOLIMUMAB
  387. SIMPONI [Concomitant]
     Active Substance: GOLIMUMAB
     Dosage: 50 MILLIGRAM, SUBCUTANEOUS USE, 1 EVERY 1 WEEK
  388. SIMPONI [Concomitant]
     Active Substance: GOLIMUMAB
  389. SIMPONI [Concomitant]
     Active Substance: GOLIMUMAB
  390. SIMPONI [Concomitant]
     Active Substance: GOLIMUMAB
  391. SIMPONI [Concomitant]
     Active Substance: GOLIMUMAB
  392. STELARA [Concomitant]
     Active Substance: USTEKINUMAB
     Indication: Psoriasis
  393. STELARA [Concomitant]
     Active Substance: USTEKINUMAB
     Indication: Psoriatic arthropathy
  394. STELARA [Concomitant]
     Active Substance: USTEKINUMAB
  395. STELARA [Concomitant]
     Active Substance: USTEKINUMAB
  396. SULFAMETHOXAZOLE [Concomitant]
     Active Substance: SULFAMETHOXAZOLE
     Indication: Product used for unknown indication
  397. SULFAMETHOXAZOLE [Concomitant]
     Active Substance: SULFAMETHOXAZOLE
  398. SULFAMETHOXAZOLE [Concomitant]
     Active Substance: SULFAMETHOXAZOLE
  399. SULFASALAZINE [Concomitant]
     Active Substance: SULFASALAZINE
     Indication: Rheumatoid arthritis
  400. SULFASALAZINE [Concomitant]
     Active Substance: SULFASALAZINE
  401. SULFASALAZINE [Concomitant]
     Active Substance: SULFASALAZINE
  402. SULFASALAZINE [Concomitant]
     Active Substance: SULFASALAZINE
  403. SULFASALAZINE [Concomitant]
     Active Substance: SULFASALAZINE
  404. SULFASALAZINE [Concomitant]
     Active Substance: SULFASALAZINE
  405. SULFASALAZINE [Concomitant]
     Active Substance: SULFASALAZINE
  406. SULFASALAZINE [Concomitant]
     Active Substance: SULFASALAZINE
  407. SULFASALAZINE [Concomitant]
     Active Substance: SULFASALAZINE
  408. SULFASALAZINE [Concomitant]
     Active Substance: SULFASALAZINE
  409. SULFASALAZINE [Concomitant]
     Active Substance: SULFASALAZINE
  410. SULFASALAZINE [Concomitant]
     Active Substance: SULFASALAZINE
  411. SULFASALAZINE [Concomitant]
     Active Substance: SULFASALAZINE
  412. SULFASALAZINE [Concomitant]
     Active Substance: SULFASALAZINE
  413. SULFASALAZINE [Concomitant]
     Active Substance: SULFASALAZINE
  414. SULFASALAZINE [Concomitant]
     Active Substance: SULFASALAZINE
  415. SULFASALAZINE [Concomitant]
     Active Substance: SULFASALAZINE
  416. SULFASALAZINE [Concomitant]
     Active Substance: SULFASALAZINE
  417. TOCILIZUMAB [Concomitant]
     Active Substance: TOCILIZUMAB
     Indication: Rheumatoid arthritis
  418. TOCILIZUMAB [Concomitant]
     Active Substance: TOCILIZUMAB
  419. TOCILIZUMAB [Concomitant]
     Active Substance: TOCILIZUMAB
  420. TOCILIZUMAB [Concomitant]
     Active Substance: TOCILIZUMAB
  421. TOCILIZUMAB [Concomitant]
     Active Substance: TOCILIZUMAB
  422. TOFACITINIB [Concomitant]
     Active Substance: TOFACITINIB
     Indication: Rheumatoid arthritis
     Dosage: 5 MILLIGRAM, ORAL USE, QWK, 1 EVERY 1 WEEKS
  423. TOFACITINIB [Concomitant]
     Active Substance: TOFACITINIB
  424. TOFACITINIB [Concomitant]
     Active Substance: TOFACITINIB
  425. TOFACITINIB [Concomitant]
     Active Substance: TOFACITINIB
  426. TOFACITINIB CITRATE [Concomitant]
     Active Substance: TOFACITINIB CITRATE
     Indication: Rheumatoid arthritis
  427. TOFACITINIB CITRATE [Concomitant]
     Active Substance: TOFACITINIB CITRATE
     Indication: Psoriatic arthropathy
  428. TOFACITINIB CITRATE [Concomitant]
     Active Substance: TOFACITINIB CITRATE
     Dosage: 5 MILLIGRAM, ORAL USE, QW, 1 EVERY 1 WEEK
  429. TOFACITINIB CITRATE [Concomitant]
     Active Substance: TOFACITINIB CITRATE
  430. TOFACITINIB CITRATE [Concomitant]
     Active Substance: TOFACITINIB CITRATE
  431. TOFACITINIB CITRATE [Concomitant]
     Active Substance: TOFACITINIB CITRATE
  432. TOPICORT [Concomitant]
     Active Substance: DESOXIMETASONE
     Indication: Rheumatoid arthritis
  433. TOPICORT [Concomitant]
     Active Substance: DESOXIMETASONE
  434. TOPICORT [Concomitant]
     Active Substance: DESOXIMETASONE
  435. TRIAMCINOLONE [Concomitant]
     Active Substance: TRIAMCINOLONE
     Indication: Product used for unknown indication
  436. TUMS [Concomitant]
     Active Substance: CALCIUM CARBONATE
     Indication: Product used for unknown indication
  437. TUMS [Concomitant]
     Active Substance: CALCIUM CARBONATE
  438. USTEKINUMAB [Concomitant]
     Active Substance: USTEKINUMAB
     Indication: Psoriasis
  439. USTEKINUMAB [Concomitant]
     Active Substance: USTEKINUMAB
  440. USTEKINUMAB [Concomitant]
     Active Substance: USTEKINUMAB
  441. USTEKINUMAB [Concomitant]
     Active Substance: USTEKINUMAB
  442. USTEKINUMAB [Concomitant]
     Active Substance: USTEKINUMAB
  443. USTEKINUMAB [Concomitant]
     Active Substance: USTEKINUMAB
  444. VITAMIN C [Concomitant]
     Active Substance: ASCORBIC ACID
     Indication: Product used for unknown indication
  445. VITAMIN D3 [Concomitant]
     Active Substance: CHOLECALCIFEROL
     Indication: Product used for unknown indication
  446. VOLTAREN [Concomitant]
     Active Substance: DICLOFENAC SODIUM
     Indication: Product used for unknown indication
  447. VOLTAREN [Concomitant]
     Active Substance: DICLOFENAC SODIUM
  448. VOLTAREN [Concomitant]
     Active Substance: DICLOFENAC SODIUM
  449. VOLTAREN [Concomitant]
     Active Substance: DICLOFENAC SODIUM
  450. PREDNISONE [Concomitant]
     Active Substance: PREDNISONE
     Indication: Rheumatoid arthritis
  451. XELJANZ [Concomitant]
     Active Substance: TOFACITINIB CITRATE
     Indication: Rheumatoid arthritis
  452. XELJANZ [Concomitant]
     Active Substance: TOFACITINIB CITRATE
     Indication: Psoriatic arthropathy
     Dosage: 5 MILLIGRAM, ORAL USE, QWK 1 EVERY 1 WEEK
  453. XELJANZ [Concomitant]
     Active Substance: TOFACITINIB CITRATE
  454. XELJANZ [Concomitant]
     Active Substance: TOFACITINIB CITRATE
  455. XELJANZ [Concomitant]
     Active Substance: TOFACITINIB CITRATE
  456. XELJANZ [Concomitant]
     Active Substance: TOFACITINIB CITRATE
  457. XELJANZ [Concomitant]
     Active Substance: TOFACITINIB CITRATE
  458. XELJANZ [Concomitant]
     Active Substance: TOFACITINIB CITRATE
  459. XELJANZ [Concomitant]
     Active Substance: TOFACITINIB CITRATE
  460. XELJANZ [Concomitant]
     Active Substance: TOFACITINIB CITRATE
  461. XELJANZ [Concomitant]
     Active Substance: TOFACITINIB CITRATE
  462. XELJANZ [Concomitant]
     Active Substance: TOFACITINIB CITRATE
  463. XELJANZ [Concomitant]
     Active Substance: TOFACITINIB CITRATE

REACTIONS (14)
  - Asthenia [Fatal]
  - Anti-cyclic citrullinated peptide antibody positive [Fatal]
  - Asthma [Fatal]
  - Blood cholesterol increased [Fatal]
  - Chest pain [Fatal]
  - Decreased appetite [Fatal]
  - Gait inability [Fatal]
  - Injury [Fatal]
  - Lower limb fracture [Fatal]
  - Mobility decreased [Fatal]
  - Nausea [Fatal]
  - Sciatica [Fatal]
  - Urticaria [Fatal]
  - Road traffic accident [Fatal]
